FAERS Safety Report 8587597-5 (Version None)
Quarter: 2012Q3

REPORT INFORMATION
  Report Type: 
  Country: None (occurrence: None)
  Receive Date: 20120810
  Receipt Date: 20120203
  Transmission Date: 20120928
  Serious: Yes (Other)
  Sender: FDA-Public Use
  Company Number: PHEH2012US015311

PATIENT
  Sex: Male

DRUGS (14)
  1. METADATE CD [Suspect]
     Dosage: 25 MG
  2. TEGRETOL [Suspect]
     Dosage: 150 MG, TID
  3. ZOLOFT [Suspect]
     Dosage: 25 MG, QD
  4. TRILEPTAL [Suspect]
     Dosage: 25 MG, QD
  5. RISPERIDONE [Suspect]
     Dosage: 50 MG, BID
  6. LITHIUM CARBONATE [Suspect]
     Dosage: 900 MG, QD
  7. KLONOPIN [Suspect]
     Dosage: 1 MG, QD (MRN)
  8. STRATTERA [Suspect]
     Dosage: 50 MG, QD
  9. ABILIFY [Suspect]
     Dosage: 40 MG, QD
  10. CLOZARIL [Suspect]
     Indication: SCHIZOPHRENIA
  11. ZYPREXA [Concomitant]
     Dosage: 20 MG, QD
  12. CLONIDINE [Suspect]
     Dosage: 0.02 MG, BID
  13. DEPAKOTE [Suspect]
     Dosage: 125 MG, QD
  14. SEROQUEL [Suspect]
     Dosage: 25 MG, QD

REACTIONS (2)
  - TIC [None]
  - DYSTONIA [None]
